FAERS Safety Report 11712976 (Version 2)
Quarter: 2015Q4

REPORT INFORMATION
  Report Type: Report from Study
  Country: US (occurrence: US)
  Receive Date: 20151108
  Receipt Date: 20151208
  Transmission Date: 20160304
  Serious: Yes (Other)
  Sender: FDA-Public Use
  Company Number: US-AMGEN-USASL2015116353

PATIENT
  Age: 78 Year
  Sex: Female

DRUGS (1)
  1. KYPROLIS [Suspect]
     Active Substance: CARFILZOMIB
     Indication: PRODUCT USED FOR UNKNOWN INDICATION
     Dosage: UNK, UNK
     Route: 065
     Dates: end: 20150921

REACTIONS (14)
  - Amnesia [Unknown]
  - Fall [Unknown]
  - Clostridium difficile infection [Unknown]
  - Dysgeusia [Unknown]
  - Dysstasia [Unknown]
  - Cellulitis [Unknown]
  - Cerebrovascular accident [Unknown]
  - Gait disturbance [Unknown]
  - Visual field defect [Unknown]
  - Headache [Unknown]
  - Appetite disorder [Unknown]
  - Arterial occlusive disease [Unknown]
  - Wound [Unknown]
  - Cholelithiasis [Unknown]

NARRATIVE: CASE EVENT DATE: 201508
